FAERS Safety Report 4712974-X (Version None)
Quarter: 2005Q3

REPORT INFORMATION
  Report Type: 
  Country: None (occurrence: None)
  Receive Date: 20050711
  Receipt Date: 20050630
  Transmission Date: 20060218
  Serious: Yes (Hospitalization, Other)
  Sender: FDA-Public Use
  Company Number: HQWYE945213DEC04

PATIENT
  Age: 52 Year
  Sex: Male
  Weight: 80.63 kg

DRUGS (19)
  1. RAPAMUNE [Suspect]
     Indication: PROPHYLAXIS AGAINST TRANSPLANT REJECTION
     Dosage: DOSE VARIES (CONCENTRATION CONTROLLED); 2 MG, 2 MG AND 1 MG ALTERNATING ON A CYCLICAL BASIS
     Route: 048
     Dates: start: 20040409
  2. ..... [Concomitant]
  3. HYDRALAZINE HCL [Concomitant]
  4. LASIX [Concomitant]
  5. CLONIDINE [Concomitant]
  6. METOPROLOL TARTRATE [Concomitant]
  7. PREDNISONE [Concomitant]
  8. GLIPIZIDE [Concomitant]
  9. FOLIC ACID [Concomitant]
  10. FISH OIL, HYDROGENATED (FISH OIL, HYDROGENATED) [Concomitant]
  11. LIPITOR [Concomitant]
  12. ASPIRIN [Concomitant]
  13. IMDUR [Concomitant]
  14. LANSOPRAZOLE [Concomitant]
  15. MAGNESIUM OXIDE (MAGNESIUM OXIDE) [Concomitant]
  16. URSODIOL (URSODEOXYCHOLIC ACID) [Concomitant]
  17. SODIUM BICARBONATE IN PLASTIC CONTAINER [Concomitant]
  18. ALLOPURINOL [Concomitant]
  19. ZOLPIDEM TARTRATE [Concomitant]

REACTIONS (2)
  - RENAL FAILURE [None]
  - RENAL VESSEL DISORDER [None]
